FAERS Safety Report 15757954 (Version 1)
Quarter: 2018Q4

REPORT INFORMATION
  Report Type: Spontaneous
  Country: GB (occurrence: GB)
  Receive Date: 20181225
  Receipt Date: 20181225
  Transmission Date: 20190205
  Serious: Yes (Other)
  Sender: FDA-Public Use
  Company Number: GB-ACCORD-096778

PATIENT
  Age: 53 Year
  Sex: Female
  Weight: 72.57 kg

DRUGS (4)
  1. RAMIPRIL. [Suspect]
     Active Substance: RAMIPRIL
     Indication: HYPERTENSION
     Route: 048
     Dates: start: 20180105, end: 20180201
  2. MEBEVERINE [Concomitant]
     Active Substance: MEBEVERINE
  3. GABAPENTIN. [Concomitant]
     Active Substance: GABAPENTIN
  4. TEGRETOL XR [Concomitant]
     Active Substance: CARBAMAZEPINE

REACTIONS (5)
  - Abdominal distension [Recovered/Resolved]
  - Chromaturia [Recovered/Resolved]
  - Urine flow decreased [Recovered/Resolved]
  - Malaise [Recovered/Resolved]
  - Joint swelling [Recovered/Resolved]

NARRATIVE: CASE EVENT DATE: 20180105
